FAERS Safety Report 9792592 (Version 1)
Quarter: 2014Q1

REPORT INFORMATION
  Report Type: Spontaneous
  Country: US (occurrence: US)
  Receive Date: 20140102
  Receipt Date: 20140102
  Transmission Date: 20141002
  Serious: No
  Sender: FDA-Public Use
  Company Number: US-TEVA-449918USA

PATIENT
  Age: 76 Year
  Sex: Female
  Weight: 62.2 kg

DRUGS (14)
  1. AZILECT [Suspect]
     Indication: PARKINSON^S DISEASE
     Dates: start: 201310
  2. SINEMET [Concomitant]
     Indication: PARKINSON^S DISEASE
  3. MELATONIN [Concomitant]
  4. MACROBID [Concomitant]
     Indication: CYSTITIS
  5. MELOXICAM [Concomitant]
     Indication: PAIN
  6. LINSINOPRIL/HCTZ [Concomitant]
     Indication: BLOOD PRESSURE
     Dosage: 20MG/25MG
  7. LOVASTATIN [Concomitant]
     Indication: BLOOD CHOLESTEROL
  8. PREMARIN [Concomitant]
     Indication: BLADDER DISORDER
  9. PREMARIN [Concomitant]
     Indication: BLOOD OESTROGEN
  10. METRONIDAZOLE [Concomitant]
     Indication: ROSACEA
  11. MORPHINE/BUPIVACAINE [Concomitant]
     Indication: PAIN
     Dosage: 0.6MG/ 38.8MG
     Route: 037
  12. LORATIDINE [Concomitant]
     Indication: HYPERSENSITIVITY
     Dosage: 10 MILLIGRAM DAILY;
  13. GLUCOSAMINE/CHONDROITIN [Concomitant]
     Indication: ARTHRITIS
  14. NETI POT [Concomitant]

REACTIONS (3)
  - Arthritis [Not Recovered/Not Resolved]
  - Energy increased [Not Recovered/Not Resolved]
  - Arthritis [Not Recovered/Not Resolved]
